FAERS Safety Report 9726454 (Version 4)
Quarter: 2013Q4

REPORT INFORMATION
  Report Type: Spontaneous
  Country: CH (occurrence: None)
  Receive Date: 20131129
  Receipt Date: 20131227
  Transmission Date: 20140711
  Serious: Yes (Hospitalization, Other)
  Sender: FDA-Public Use
  Company Number: 2013MPI00766

PATIENT
  Age: 66 Year
  Sex: Male
  Weight: 67 kg

DRUGS (3)
  1. ADCETRIS [Suspect]
     Indication: PRIMARY EFFUSION LYMPHOMA
     Route: 042
     Dates: start: 20131031, end: 20131031
  2. TRUVADA [Suspect]
     Route: 048
     Dates: start: 200703
  3. KALETRA [Suspect]
     Route: 048
     Dates: start: 200703

REACTIONS (16)
  - Agranulocytosis [None]
  - Electrolyte imbalance [None]
  - Hyponatraemia [None]
  - Hypokalaemia [None]
  - Anaemia [None]
  - Pain [None]
  - Constipation [None]
  - Confusional state [None]
  - Leukopenia [None]
  - Neutropenia [None]
  - Overdose [None]
  - Abdominal pain upper [None]
  - Constipation [None]
  - Confusional state [None]
  - Bicytopenia [None]
  - Chest pain [None]
